FAERS Safety Report 15855568 (Version 1)
Quarter: 2019Q1

REPORT INFORMATION
  Report Type: Spontaneous
  Country: AU (occurrence: AU)
  Receive Date: 20190122
  Receipt Date: 20190122
  Transmission Date: 20190417
  Serious: Yes (Other)
  Sender: FDA-Public Use
  Company Number: AU-ELI_LILLY_AND_COMPANY-AU201901008303

PATIENT
  Age: 37 Year
  Sex: Male

DRUGS (4)
  1. LANTUS [Concomitant]
     Active Substance: INSULIN GLARGINE
     Indication: PRODUCT USED FOR UNKNOWN INDICATION
  2. HUMALOG [Suspect]
     Active Substance: INSULIN LISPRO
     Dosage: 48 U, BEFORE LUNCH
     Route: 058
     Dates: start: 1996
  3. HUMALOG [Suspect]
     Active Substance: INSULIN LISPRO
     Dosage: 48 U, BEFORE DINNER
     Route: 058
     Dates: start: 1996
  4. HUMALOG [Suspect]
     Active Substance: INSULIN LISPRO
     Indication: TYPE 1 DIABETES MELLITUS
     Dosage: 44 U, EACH MORNING BEFORE FOOD
     Route: 058
     Dates: start: 1996

REACTIONS (1)
  - Brain neoplasm [Unknown]

NARRATIVE: CASE EVENT DATE: 2011
